FAERS Safety Report 7802081-1 (Version None)
Quarter: 2011Q4

REPORT INFORMATION
  Report Type: 
  Country: None (occurrence: None)
  Receive Date: 20111007
  Receipt Date: 20110926
  Transmission Date: 20120403
  Serious: Yes (Hospitalization, Other)
  Sender: FDA-Public Use
  Company Number: US-ELI_LILLY_AND_COMPANY-US201109007954

PATIENT
  Age: 68 Year
  Sex: Female

DRUGS (2)
  1. ZYPREXA [Suspect]
     Indication: BIPOLAR DISORDER
     Dosage: 15 MG, BID
     Dates: start: 20091001
  2. TEGRETOL [Concomitant]

REACTIONS (7)
  - SPEECH DISORDER [None]
  - OVERDOSE [None]
  - DIZZINESS [None]
  - DRUG INTERACTION [None]
  - HOSPITALISATION [None]
  - CARDIAC FAILURE CONGESTIVE [None]
  - MEMORY IMPAIRMENT [None]
